FAERS Safety Report 8903808 (Version 2)
Quarter: 2012Q4

REPORT INFORMATION
  Report Type: 
  Country: US (occurrence: US)
  Receive Date: 20121112
  Receipt Date: 20121210
  Transmission Date: 20130627
  Serious: No
  Sender: FDA-Public Use
  Company Number: US-PFIZER INC-2012269861

PATIENT
  Sex: Female

DRUGS (1)
  1. TOVIAZ [Suspect]
     Dosage: UNK

REACTIONS (7)
  - Intervertebral disc protrusion [Unknown]
  - Bladder cyst [Unknown]
  - Hypertonic bladder [Unknown]
  - Arthritis [Unknown]
  - Tendonitis [Unknown]
  - Hot flush [Unknown]
  - Constipation [Unknown]
